FAERS Safety Report 5223704-X (Version None)
Quarter: 2007Q1

REPORT INFORMATION
  Report Type: 
  Country: None (occurrence: None)
  Receive Date: 20070130
  Receipt Date: 20070119
  Transmission Date: 20070707
  Serious: Yes (Death, Other)
  Sender: FDA-Public Use
  Company Number: GB-JNJFOC-20070105067

PATIENT
  Sex: Female
  Weight: 106 kg

DRUGS (9)
  1. REMICADE [Suspect]
     Indication: RHEUMATOID ARTHRITIS
     Route: 042
  2. METHOTREXATE [Concomitant]
  3. PREDNISOLONE [Concomitant]
  4. CALCICHEW [Concomitant]
  5. CO-PROXAMOL [Concomitant]
  6. DICLOFENAC SODIUM [Concomitant]
  7. INSULIN [Concomitant]
  8. RANITIDINE [Concomitant]
  9. TRAMADOL HCL [Concomitant]

REACTIONS (2)
  - HEPATIC CIRRHOSIS [None]
  - HEPATITIS B [None]
